FAERS Safety Report 13684907 (Version 1)
Quarter: 2017Q2

REPORT INFORMATION
  Report Type: Spontaneous
  Country: CH (occurrence: CH)
  Receive Date: 20170623
  Receipt Date: 20170623
  Transmission Date: 20170830
  Serious: Yes (Life-Threatening, Hospitalization)
  Sender: FDA-Public Use
  Company Number: CH-BAYER-2017-114186

PATIENT
  Age: 31 Year
  Sex: Female

DRUGS (11)
  1. TOPIRAMATE. [Suspect]
     Active Substance: TOPIRAMATE
     Indication: STRESS
  2. OXCARBAZEPINE. [Suspect]
     Active Substance: OXCARBAZEPINE
     Indication: STRESS
  3. CARBAMAZEPINE. [Suspect]
     Active Substance: CARBAMAZEPINE
     Indication: STRESS
  4. CARBAMAZEPINE. [Suspect]
     Active Substance: CARBAMAZEPINE
     Indication: ANXIETY
     Dosage: 200MG; CUMULATIVE 8 TAB. = 1600 MG
     Route: 048
     Dates: start: 20170515, end: 20170518
  5. CARBAMAZEPINE. [Suspect]
     Active Substance: CARBAMAZEPINE
     Indication: FEAR
  6. TOPIRAMATE. [Suspect]
     Active Substance: TOPIRAMATE
     Indication: FEAR
  7. TOPIRAMATE. [Suspect]
     Active Substance: TOPIRAMATE
     Indication: ANXIETY
     Dosage: 50MG; CUMULATIVELY 11 TBL. = 550 MG
     Route: 048
     Dates: start: 20170515, end: 20170518
  8. OXCARBAZEPINE. [Suspect]
     Active Substance: OXCARBAZEPINE
     Indication: ANXIETY
     Dosage: 300MG, 2 TABLETS
     Route: 048
     Dates: start: 20170515, end: 20170518
  9. PARACETAMOL [Suspect]
     Active Substance: ACETAMINOPHEN
     Dosage: 1 DF, Q3MON
     Route: 048
     Dates: start: 20170519, end: 20170519
  10. OXCARBAZEPINE. [Suspect]
     Active Substance: OXCARBAZEPINE
     Indication: FEAR
  11. ASPIRIN. [Suspect]
     Active Substance: ASPIRIN
     Dosage: 1 DF, Q3MON
     Route: 048
     Dates: start: 20170519, end: 20170519

REACTIONS (5)
  - Dizziness [Recovered/Resolved]
  - Renal failure [Unknown]
  - Nausea [Recovered/Resolved]
  - Headache [Recovered/Resolved]
  - Drug-induced liver injury [Recovering/Resolving]

NARRATIVE: CASE EVENT DATE: 20170519
